FAERS Safety Report 9188543 (Version 1)
Quarter: 2013Q1

REPORT INFORMATION
  Report Type: Spontaneous
  Country: ES (occurrence: ES)
  Receive Date: 20130325
  Receipt Date: 20130325
  Transmission Date: 20140127
  Serious: Yes (Hospitalization)
  Sender: FDA-Public Use
  Company Number: ES-ELI_LILLY_AND_COMPANY-ES201009004303

PATIENT
  Age: 84 None
  Sex: Female
  Weight: 64 kg

DRUGS (12)
  1. FORSTEO [Suspect]
     Indication: OSTEOPOROSIS
     Dosage: 20 UG, DAILY (1/D)
     Route: 058
     Dates: start: 20100127, end: 201011
  2. ADIRO [Concomitant]
     Indication: PERIPHERAL VASCULAR DISORDER
     Dosage: 100 MG, DAILY (1/D)
     Route: 048
  3. DEXKETOPROFEN TROMETAMOL [Concomitant]
     Indication: ANALGESIC THERAPY
     Route: 061
  4. ALMAX [Concomitant]
     Indication: GASTRIC DISORDER
     Dosage: 1.5 G, DAILY (1/D)
     Route: 048
     Dates: start: 20100831, end: 20100907
  5. OMEPRAZOL [Concomitant]
     Indication: GASTRIC DISORDER
     Dosage: 20 MG, 3/D
     Route: 048
  6. ANTALIN [Concomitant]
     Indication: DEPRESSION
     Dosage: 10 MG, DAILY (1/D)
     Route: 048
  7. ESERTIA [Concomitant]
     Indication: DEPRESSION
     Dosage: 15 MG, DAILY (1/D)
     Route: 048
  8. SERC                               /00034201/ [Concomitant]
     Indication: DIZZINESS
     Dosage: 16 MG, 3/D
     Route: 048
     Dates: end: 20100907
  9. NOLOTIL [Concomitant]
     Indication: PAIN
     Dosage: 575 MG, 3/D
     Route: 048
  10. HYPROMELLOSE [Concomitant]
     Indication: EYE DISORDER
     Route: 061
  11. ENALAPRIL [Concomitant]
     Indication: HYPERTENSION
     Dosage: 20 MG, DAILY (1/D)
     Route: 048
  12. CIPROFLOXACINO [Concomitant]
     Indication: URINARY TRACT INFECTION
     Dosage: 500 MG, 2/D
     Route: 048
     Dates: end: 20100913

REACTIONS (6)
  - Respiratory disorder [Unknown]
  - Depression [Unknown]
  - Headache [Not Recovered/Not Resolved]
  - Faecal incontinence [Not Recovered/Not Resolved]
  - Dyspnoea [Not Recovered/Not Resolved]
  - Asthenia [Not Recovered/Not Resolved]
